FAERS Safety Report 13735808 (Version 1)
Quarter: 2017Q3

REPORT INFORMATION
  Report Type: Spontaneous
  Country: FR (occurrence: FR)
  Receive Date: 20170710
  Receipt Date: 20170710
  Transmission Date: 20171127
  Serious: Yes (Hospitalization, Other)
  Sender: FDA-Public Use
  Company Number: PHHY2011FR111283

PATIENT
  Sex: Female

DRUGS (5)
  1. DESERNIL [Suspect]
     Active Substance: METHYSERGIDE MALEATE
     Indication: MIGRAINE
     Route: 048
     Dates: start: 2009, end: 201107
  2. RIVOTRIL [Concomitant]
     Active Substance: CLONAZEPAM
  3. NALGESIC [Concomitant]
  4. PRONTALGINE [Concomitant]
     Active Substance: ACETAMINOPHEN\AMOBARBITAL\CAFFEINE\CODEINE PHOSPHATE
  5. PROPRANOLOL [Concomitant]
     Active Substance: PROPRANOLOL HYDROCHLORIDE

REACTIONS (4)
  - Migraine [Unknown]
  - Retroperitoneal fibrosis [Unknown]
  - Drug abuse [Unknown]
  - Headache [Unknown]
